FAERS Safety Report 22233435 (Version 1)
Quarter: 2023Q2

REPORT INFORMATION
  Report Type: Spontaneous
  Country: US (occurrence: None)
  Receive Date: 20230419
  Receipt Date: 20230419
  Transmission Date: 20230722
  Serious: Yes (unspecified)
  Sender: FDA-Public Use
  Company Number: None

PATIENT
  Age: 70 Year
  Sex: Female
  Weight: 99 kg

DRUGS (8)
  1. METOPROLOL TARTRATE [Suspect]
     Active Substance: METOPROLOL TARTRATE
     Indication: Hypertension
     Dosage: OTHER QUANTITY : 1 TABLET(S);?FREQUENCY : EVERY 6 HOURS;?
     Route: 048
     Dates: start: 20230110, end: 20230227
  2. DEVICE [Concomitant]
     Active Substance: DEVICE
  3. Primateme inhaler [Concomitant]
  4. Senexon- S 8.6 Mg [Concomitant]
  5. Diltiazem 2-30Mg.3X a day [Concomitant]
  6. RESUVSTATIN 10MG [Concomitant]
  7. Diphenhydramine HCL 25 MG 1 tab daily [Concomitant]
  8. AZO cranberry suppliment 2 tabs daily [Concomitant]

REACTIONS (2)
  - Alopecia [None]
  - Asthma [None]

NARRATIVE: CASE EVENT DATE: 20230110
